FAERS Safety Report 15960660 (Version 1)
Quarter: 2019Q1

REPORT INFORMATION
  Report Type: Spontaneous
  Country: FR (occurrence: FR)
  Receive Date: 20190214
  Receipt Date: 20190214
  Transmission Date: 20190417
  Serious: Yes (Life-Threatening, Hospitalization)
  Sender: FDA-Public Use
  Company Number: FR-SUN PHARMACEUTICAL INDUSTRIES LTD-2019RR-199025

PATIENT
  Age: 15 Year
  Sex: Female
  Weight: 63 kg

DRUGS (4)
  1. PARACETAMOL [Suspect]
     Active Substance: ACETAMINOPHEN
     Indication: POISONING DELIBERATE
     Dosage: 8 DOSAGE FORM, IN TOTAL
     Route: 048
     Dates: start: 20180912, end: 20180912
  2. TERCIAN [Suspect]
     Active Substance: CYAMEMAZINE
     Indication: POISONING DELIBERATE
     Dosage: 15 DOSAGE FORM, IN TOTAL
     Route: 048
     Dates: start: 20180912, end: 20180912
  3. KLIPAL [Suspect]
     Active Substance: ACETAMINOPHEN\CODEINE PHOSPHATE
     Indication: POISONING DELIBERATE
     Dosage: 24 DOSAGE FORM, IN TOTAL
     Route: 048
     Dates: start: 20180912, end: 20180912
  4. TRAMADOL. [Suspect]
     Active Substance: TRAMADOL
     Indication: POISONING DELIBERATE
     Dosage: 30 DOSAGE FORM, IN TOTAL
     Route: 048
     Dates: start: 20180912, end: 20180912

REACTIONS (4)
  - Analgesic drug level increased [Recovered/Resolved]
  - Intentional overdose [Recovered/Resolved]
  - Opiates positive [Recovered/Resolved]
  - Poisoning deliberate [Recovered/Resolved]

NARRATIVE: CASE EVENT DATE: 20180912
